FAERS Safety Report 7565166-3 (Version None)
Quarter: 2011Q2

REPORT INFORMATION
  Report Type: 
  Country: None (occurrence: None)
  Receive Date: 20110622
  Receipt Date: 20101028
  Transmission Date: 20111010
  Serious: Yes (Other)
  Sender: FDA-Public Use
  Company Number: US-MYLANLABS-2010S1017736

PATIENT
  Age: 50 Year
  Sex: Female

DRUGS (6)
  1. CLOZAPINE [Suspect]
     Route: 048
     Dates: end: 20100922
  2. ZYPREXA [Concomitant]
  3. CRESTOR [Concomitant]
  4. COGENTIN [Concomitant]
  5. CLOZAPINE [Suspect]
     Indication: SCHIZOPHRENIA
     Route: 048
     Dates: end: 20100922
  6. DEPAKOTE ER [Concomitant]

REACTIONS (1)
  - GRANULOCYTOPENIA [None]
